FAERS Safety Report 13872906 (Version 2)
Quarter: 2017Q3

REPORT INFORMATION
  Report Type: Spontaneous
  Country: US (occurrence: US)
  Receive Date: 20170816
  Receipt Date: 20170818
  Transmission Date: 20171127
  Serious: Yes (Hospitalization)
  Sender: FDA-Public Use
  Company Number: US-ASTRAZENECA-2017SE82226

PATIENT
  Age: 758 Month
  Sex: Male
  Weight: 99.8 kg

DRUGS (16)
  1. BYDUREON [Suspect]
     Active Substance: EXENATIDE
     Indication: BLOOD GLUCOSE ABNORMAL
     Route: 058
  2. DULOXETINE. [Concomitant]
     Active Substance: DULOXETINE
     Indication: MUSCULOSKELETAL CHEST PAIN
     Route: 048
  3. CENTRUM SILVER MULTI [Concomitant]
     Indication: MULTI-VITAMIN DEFICIENCY
     Dosage: EVERY DAY
     Route: 048
  4. METFORMIN [Concomitant]
     Active Substance: METFORMIN HYDROCHLORIDE
     Indication: BLOOD GLUCOSE ABNORMAL
     Route: 048
  5. GLIMEPIRIDE. [Concomitant]
     Active Substance: GLIMEPIRIDE
     Route: 048
  6. AMITRIPTYLINE [Concomitant]
     Active Substance: AMITRIPTYLINE
     Indication: SLEEP DISORDER
     Route: 048
  7. METOPROLOL TARTRATE. [Suspect]
     Active Substance: METOPROLOL TARTRATE
     Route: 048
  8. WARFARIN [Concomitant]
     Active Substance: WARFARIN
     Indication: VEIN DISORDER
     Dosage: 5.0 ON MONDAYS, WEDNESDAYS, AND FRIDAYS, AND 7.5 ON TUESDAYS, THURSDAYS AND SUNDAYS
     Route: 048
     Dates: start: 2014
  9. CILOSTAZOL. [Concomitant]
     Active Substance: CILOSTAZOL
     Route: 048
  10. VITAMIN D3 [Concomitant]
     Active Substance: CHOLECALCIFEROL
     Indication: ANAEMIA
     Route: 048
  11. PANTOPRAZOLE [Concomitant]
     Active Substance: PANTOPRAZOLE
     Indication: GASTROOESOPHAGEAL REFLUX DISEASE
     Route: 048
  12. LISINOPRIL. [Suspect]
     Active Substance: LISINOPRIL
     Indication: BLOOD PRESSURE ABNORMAL
     Route: 048
  13. INSULIN GLARGINE [Concomitant]
     Active Substance: INSULIN GLARGINE
     Indication: BLOOD GLUCOSE ABNORMAL
     Route: 058
  14. ALPRAZOLAM. [Concomitant]
     Active Substance: ALPRAZOLAM
     Indication: GASTROOESOPHAGEAL REFLUX DISEASE
     Route: 048
  15. ATORVASTATIN [Concomitant]
     Active Substance: ATORVASTATIN
     Route: 048
  16. IRON [Concomitant]
     Active Substance: IRON
     Dosage: DAILY
     Route: 048

REACTIONS (10)
  - Chest discomfort [Unknown]
  - Injection site pain [Recovered/Resolved]
  - Off label use [Unknown]
  - Device malfunction [Unknown]
  - Gastrooesophageal reflux disease [Unknown]
  - Urinary tract infection [Recovered/Resolved]
  - Pulmonary thrombosis [Recovered/Resolved]
  - Wrong technique in product usage process [Unknown]
  - Injection site haemorrhage [Recovered/Resolved]
  - Tissue discolouration [Recovered/Resolved]

NARRATIVE: CASE EVENT DATE: 201707
